FAERS Safety Report 10176570 (Version 4)
Quarter: 2014Q4

REPORT INFORMATION
  Report Type: Spontaneous
  Country: US (occurrence: US)
  Receive Date: 20140516
  Receipt Date: 20141002
  Transmission Date: 20150528
  Serious: Yes (Hospitalization, Disabling, Other)
  Sender: FDA-Public Use
  Company Number: US-BAYER-2014-071615

PATIENT
  Age: 31 Year
  Sex: Female
  Weight: 137.87 kg

DRUGS (3)
  1. LISINOPRIL. [Concomitant]
     Active Substance: LISINOPRIL
     Indication: HYPERTENSION
     Dosage: UNK
     Dates: start: 2014
  2. MIRENA [Suspect]
     Active Substance: LEVONORGESTREL
     Indication: CONTRACEPTION
     Dosage: 20 MCG/24HR, CONT
     Route: 015
     Dates: start: 201103, end: 20140423
  3. METFORMIN [Concomitant]
     Active Substance: METFORMIN HYDROCHLORIDE
     Dosage: UNK
     Dates: start: 2014

REACTIONS (30)
  - Procedural pain [None]
  - Anhedonia [None]
  - Weight increased [None]
  - Migraine [None]
  - Fatigue [None]
  - Hypovitaminosis [None]
  - Hepatic enzyme increased [None]
  - Device defective [None]
  - General physical health deterioration [None]
  - Device dislocation [None]
  - Inflammatory bowel disease [None]
  - Depression [Not Recovered/Not Resolved]
  - Injury [None]
  - Abdominal distension [None]
  - Asthenia [None]
  - Amenorrhoea [None]
  - Impaired insulin secretion [None]
  - Emotional distress [None]
  - Polycystic ovaries [None]
  - Genital haemorrhage [None]
  - Anxiety [Not Recovered/Not Resolved]
  - Abdominal pain [None]
  - Uterine perforation [None]
  - Diarrhoea [None]
  - Sepsis [None]
  - Obstruction [None]
  - Device difficult to use [None]
  - Dysmenorrhoea [None]
  - Dizziness [None]
  - Dyspareunia [None]

NARRATIVE: CASE EVENT DATE: 2013
